FAERS Safety Report 21012611 (Version 2)
Quarter: 2022Q3

REPORT INFORMATION
  Report Type: Report from Study
  Country: CN (occurrence: CN)
  Receive Date: 20220627
  Receipt Date: 20220920
  Transmission Date: 20221027
  Serious: Yes (Life-Threatening, Hospitalization)
  Sender: FDA-Public Use
  Company Number: CN-GILEAD-2022-0583620

PATIENT
  Sex: Male
  Weight: 90 kg

DRUGS (11)
  1. SACITUZUMAB GOVITECAN [Suspect]
     Active Substance: SACITUZUMAB GOVITECAN
     Indication: Transitional cell carcinoma
     Dosage: 900 MG, Q3WK C1D1 AND D8
     Route: 041
     Dates: start: 20220516, end: 20220523
  2. FELODIPINE [Concomitant]
     Active Substance: FELODIPINE
     Indication: Hypertension
     Dosage: UNK
     Dates: start: 2019
  3. VALSARTAN [Concomitant]
     Active Substance: VALSARTAN
     Indication: Hypertension
     Dosage: UNK
     Dates: start: 2019
  4. OLANZAPINE [Concomitant]
     Active Substance: OLANZAPINE
     Indication: Insomnia
     Dosage: UNK
     Dates: start: 2019
  5. SERTRALINE [Concomitant]
     Active Substance: SERTRALINE HYDROCHLORIDE
     Indication: Insomnia
     Dosage: UNK
     Dates: start: 2019
  6. APREPITANT [Concomitant]
     Active Substance: APREPITANT
     Dosage: PRETREATMENT
     Dates: start: 20220516, end: 20220516
  7. DEXAMETHASONE SODIUM PHOSPHATE [Concomitant]
     Active Substance: DEXAMETHASONE SODIUM PHOSPHATE
     Dosage: PRETREATMENT
     Dates: start: 20220516, end: 20220516
  8. TROPISETRON HYDROCHLORIDE AND GLUCOSE [Concomitant]
     Dosage: PRETREATMENT
     Dates: start: 20220516, end: 20220516
  9. DIPHENHYDRAMINE HYDROCHLORIDE [Concomitant]
     Active Substance: DIPHENHYDRAMINE HYDROCHLORIDE
     Dosage: PRETREATMENT
     Dates: start: 20220516, end: 20220516
  10. FAMOTIDINE [Concomitant]
     Active Substance: FAMOTIDINE
     Dosage: PRETREATMENT
     Dates: start: 20220516, end: 20220516
  11. URSODEOXYCHOLIC AC [Concomitant]
     Dosage: UNK
     Dates: start: 20220523

REACTIONS (2)
  - Neutrophil count decreased [Recovered/Resolved]
  - Enteritis infectious [Recovered/Resolved]

NARRATIVE: CASE EVENT DATE: 20220530
